APPROVED DRUG PRODUCT: ERZOFRI
Active Ingredient: PALIPERIDONE PALMITATE
Strength: 156MG/ML (156MG/ML)
Dosage Form/Route: SUSPENSION, EXTENDED RELEASE;INTRAMUSCULAR
Application: N216352 | Product #004
Applicant: LUYE INNOMIND PHARMA (SHIJIAZHUANG) CO LTD
Approved: Jul 26, 2024 | RLD: Yes | RS: Yes | Type: RX

PATENTS:
Patent 11666573 | Expires: Sep 24, 2039
Patent 11666573 | Expires: Sep 24, 2039
Patent 12128049 | Expires: Oct 26, 2038
Patent 12128049 | Expires: Oct 26, 2038